FAERS Safety Report 7810736-8 (Version None)
Quarter: 2011Q4

REPORT INFORMATION
  Report Type: 
  Country: None (occurrence: None)
  Receive Date: 20111011
  Receipt Date: 20110930
  Transmission Date: 20120403
  Serious: Yes (Hospitalization, Other)
  Sender: FDA-Public Use
  Company Number: 2011P1009198

PATIENT
  Age: 37 Year
  Sex: Female

DRUGS (1)
  1. ALBENDAZOLE (NO PREF. NAME) [Suspect]
     Indication: HELMINTHIC INFECTION
     Dosage: 400 MG;X1
     Dates: start: 20110908, end: 20110908

REACTIONS (1)
  - ABDOMINAL PAIN UPPER [None]
